FAERS Safety Report 8507454-X (Version None)
Quarter: 2012Q3

REPORT INFORMATION
  Report Type: 
  Country: None (occurrence: None)
  Receive Date: 20120712
  Receipt Date: 20120710
  Transmission Date: 20120928
  Serious: Yes (Hospitalization)
  Sender: FDA-Public Use
  Company Number: US-BAYER-2012-068935

PATIENT
  Sex: Male

DRUGS (8)
  1. HIGH BLOOD PRESSURE MEDICINE [Concomitant]
  2. ASACOL [Concomitant]
  3. GERD MEDICINE [Concomitant]
  4. LEVITRA [Suspect]
     Indication: ERECTILE DYSFUNCTION
     Dosage: 20 MG, ONCE
     Route: 048
  5. CROHN'S MEDICINE [Concomitant]
  6. CHOLESTEROL MEDICINE [Concomitant]
  7. VITAMIN D [Concomitant]
  8. IRON [Concomitant]

REACTIONS (1)
  - SMALL INTESTINAL OBSTRUCTION [None]
